FAERS Safety Report 15376069 (Version 1)
Quarter: 2018Q3

REPORT INFORMATION
  Report Type: Spontaneous
  Country: US (occurrence: US)
  Receive Date: 20180912
  Receipt Date: 20180912
  Transmission Date: 20181010
  Serious: Yes (Other)
  Sender: FDA-Public Use
  Company Number: US-TEVA-2018-US-952834

PATIENT
  Age: 41 Year
  Sex: Female

DRUGS (17)
  1. COPAXONE [Suspect]
     Active Substance: GLATIRAMER ACETATE
     Indication: MULTIPLE SCLEROSIS
     Route: 058
     Dates: start: 20151223
  2. NITROFURANTIN [Concomitant]
     Active Substance: NITROFURANTOIN
     Route: 065
  3. FAMOTIDINE. [Concomitant]
     Active Substance: FAMOTIDINE
     Route: 065
  4. IBUPROFEN. [Concomitant]
     Active Substance: IBUPROFEN
     Route: 065
  5. CHLORHEX GLU SOL [Concomitant]
     Route: 065
  6. AMLODIPINE [Concomitant]
     Active Substance: AMLODIPINE BESYLATE
     Route: 065
  7. MIRALAX [Concomitant]
     Active Substance: POLYETHYLENE GLYCOL 3350
     Route: 065
  8. METOCLOPRAM [Concomitant]
     Active Substance: METOCLOPRAMIDE
  9. ORTHO TRI [Concomitant]
     Route: 065
  10. TRIAMT/ HCTZ [Concomitant]
     Route: 065
  11. METHYLPRED [Concomitant]
     Active Substance: METHYLPREDNISOLONE
     Route: 065
  12. POLYETH GLYC [Concomitant]
     Active Substance: POLYETHYLENE GLYCOLS
     Route: 065
  13. BANOPHEN [Concomitant]
     Active Substance: DIPHENHYDRAMINE HYDROCHLORIDE
     Route: 065
  14. CLINDAMYCIN. [Concomitant]
     Active Substance: CLINDAMYCIN
     Route: 065
  15. BACLOFEN. [Concomitant]
     Active Substance: BACLOFEN
     Route: 065
  16. EPINEPHRINE. [Concomitant]
     Active Substance: EPINEPHRINE
     Route: 065
  17. PREDNISONE. [Concomitant]
     Active Substance: PREDNISONE
     Route: 065

REACTIONS (3)
  - Gait disturbance [Unknown]
  - Drug dose omission [Unknown]
  - Angioedema [Unknown]

NARRATIVE: CASE EVENT DATE: 20180902
